FAERS Safety Report 8454202-8 (Version None)
Quarter: 2012Q2

REPORT INFORMATION
  Report Type: 
  Country: None (occurrence: None)
  Receive Date: 20120620
  Receipt Date: 20120612
  Transmission Date: 20120825
  Serious: Yes (Other)
  Sender: FDA-Public Use
  Company Number: CA-ROCHE-1078857

PATIENT
  Sex: Male
  Weight: 68.1 kg

DRUGS (5)
  1. DILANTIN [Concomitant]
  2. MICARDIS [Concomitant]
  3. METHOTREXATE [Concomitant]
  4. PREDNISONE TAB [Concomitant]
  5. MABTHERA [Suspect]
     Indication: RHEUMATOID ARTHRITIS
     Route: 042
     Dates: start: 20120117

REACTIONS (1)
  - EMPHYSEMA [None]
